FAERS Safety Report 5427554-0 (Version None)
Quarter: 2007Q3

REPORT INFORMATION
  Report Type: 
  Country: None (occurrence: None)
  Receive Date: 20070828
  Receipt Date: 20070822
  Transmission Date: 20080115
  Serious: Yes (Other)
  Sender: FDA-Public Use
  Company Number: A0674706A

PATIENT
  Age: 62 Year
  Sex: Male

DRUGS (5)
  1. LAMICTAL [Suspect]
     Indication: BIPOLAR DISORDER
     Dosage: 200MG PER DAY
     Route: 048
     Dates: start: 20070501
  2. PROZAC [Concomitant]
  3. LIBRIUM [Concomitant]
  4. BUSPAR [Concomitant]
  5. REMERON [Concomitant]

REACTIONS (8)
  - AMNESIA [None]
  - BALANCE DISORDER [None]
  - CONVULSION [None]
  - GAIT DISTURBANCE [None]
  - HYPERVIGILANCE [None]
  - RASH [None]
  - SOMNOLENCE [None]
  - SUDDEN ONSET OF SLEEP [None]
